FAERS Safety Report 4819270-0 (Version None)
Quarter: 2005Q4

REPORT INFORMATION
  Report Type: 
  Country: None (occurrence: None)
  Receive Date: 20051103
  Receipt Date: 20051027
  Transmission Date: 20060501
  Serious: Yes (Hospitalization)
  Sender: FDA-Public Use
  Company Number: US-BRISTOL-MYERS SQUIBB COMPANY-13159850

PATIENT
  Age: 43 Year
  Sex: Male

DRUGS (6)
  1. CETUXIMAB [Suspect]
     Indication: SQUAMOUS CELL CARCINOMA
     Route: 042
     Dates: start: 20050518, end: 20050518
  2. CARBOPLATIN [Suspect]
     Indication: SQUAMOUS CELL CARCINOMA
     Dosage: THERAPY INITIATED 18-MAY-2005.
     Route: 042
     Dates: start: 20050620, end: 20050620
  3. PACLITAXEL [Suspect]
     Indication: SQUAMOUS CELL CARCINOMA
     Dosage: THERAPY INITIATED 18-MAY-2005
     Route: 042
     Dates: start: 20050620, end: 20050620
  4. RADIATION THERAPY [Suspect]
     Indication: SQUAMOUS CELL CARCINOMA
     Dosage: 11-JUL-2005 TO PRESENT
     Dates: start: 20050711
  5. COMPAZINE [Concomitant]
  6. LORTAB [Concomitant]
     Dosage: 1-2 TABLETS AS NECESSARY FOR PAIN.

REACTIONS (3)
  - DEHYDRATION [None]
  - MUCOSAL INFLAMMATION [None]
  - PAIN [None]
